FAERS Safety Report 14109926 (Version 1)
Quarter: 2017Q4

REPORT INFORMATION
  Report Type: Spontaneous
  Country: US (occurrence: US)
  Receive Date: 20171020
  Receipt Date: 20171020
  Transmission Date: 20180321
  Serious: No
  Sender: FDA-Public Use
  Company Number: US-TEVA-789069ACC

PATIENT

DRUGS (1)
  1. EQ MICONAZOLE CREAM [Suspect]
     Active Substance: MICONAZOLE
     Indication: FUNGAL INFECTION
     Dosage: AS DIRECTED
     Dates: start: 20170713

REACTIONS (2)
  - Accidental exposure to product [Unknown]
  - Vision blurred [Recovered/Resolved]

NARRATIVE: CASE EVENT DATE: 20170714
